FAERS Safety Report 5152254-4 (Version None)
Quarter: 2006Q4

REPORT INFORMATION
  Report Type: 
  Country: None (occurrence: None)
  Receive Date: 20061116
  Receipt Date: 20060925
  Transmission Date: 20070319
  Serious: Yes (Other)
  Sender: FDA-Public Use
  Company Number: US-PURDUE-USA_2006_0025700

PATIENT
  Age: 43 Year
  Sex: Male

DRUGS (2)
  1. OXYCONTIN [Suspect]
     Indication: DRUG ABUSER
  2. ALCOHOL [Suspect]
     Indication: ALCOHOLISM

REACTIONS (7)
  - ANGER [None]
  - FEELING ABNORMAL [None]
  - HYPOREFLEXIA [None]
  - MULTIPLE DRUG OVERDOSE INTENTIONAL [None]
  - PHYSICAL ASSAULT [None]
  - POLYSUBSTANCE DEPENDENCE [None]
  - STUPOR [None]
